FAERS Safety Report 23960439 (Version 1)
Quarter: 2024Q2

REPORT INFORMATION
  Report Type: Spontaneous
  Country: US (occurrence: US)
  Receive Date: 20240611
  Receipt Date: 20240611
  Transmission Date: 20240716
  Serious: Yes (Hospitalization)
  Sender: FDA-Public Use
  Company Number: US-BRISTOL-MYERS SQUIBB COMPANY-2024-091393

PATIENT
  Age: 61 Year
  Sex: Male
  Weight: 127.01 kg

DRUGS (1)
  1. REVLIMID [Suspect]
     Active Substance: LENALIDOMIDE
     Indication: Plasma cell myeloma
     Dosage: BY MOUTH DAILY FOR 21 DAYS
     Route: 048
     Dates: start: 20221208

REACTIONS (1)
  - Hypoaesthesia [Unknown]
